FAERS Safety Report 15609384 (Version 2)
Quarter: 2018Q4

REPORT INFORMATION
  Report Type: Report from Study
  Country: US (occurrence: US)
  Receive Date: 20181112
  Receipt Date: 20181127
  Transmission Date: 20190205
  Serious: Yes (Hospitalization, Other)
  Sender: FDA-Public Use
  Company Number: US-BRISTOL-MYERS SQUIBB COMPANY-BMS-2018-104443

PATIENT
  Age: 75 Year
  Sex: Female
  Weight: 51.3 kg

DRUGS (6)
  1. NIVOLUMAB [Suspect]
     Active Substance: NIVOLUMAB
     Indication: LUNG ADENOCARCINOMA STAGE IV
     Dosage: 3 MG/KG, Q2WK (STRENGTH 100MG/10ML)
     Route: 065
     Dates: start: 20181001, end: 20181029
  2. IPILIMUMAB [Suspect]
     Active Substance: IPILIMUMAB
     Indication: LUNG ADENOCARCINOMA STAGE IV
     Dosage: 1 MG/KG, Q6WK (STRENGTH 5 MG/ML)
     Route: 065
     Dates: start: 20181001
  3. TESSALON [Concomitant]
     Active Substance: BENZONATATE
     Indication: COUGH
     Dosage: 100 MG, Q8H
     Route: 048
     Dates: start: 20181102
  4. SYNTHROID [Concomitant]
     Active Substance: LEVOTHYROXINE SODIUM
     Indication: PRODUCT USED FOR UNKNOWN INDICATION
     Dosage: 112 ?G, UNK
     Route: 065
  5. HYCODAN                            /00060002/ [Concomitant]
     Active Substance: HYDROCODONE BITARTRATE
     Indication: COUGH
     Dosage: 5 MG-1.5 MG/5 ML. TAKE 5 ML EVERY 4 HOURS AS NEEDED
     Route: 048
     Dates: start: 20181102
  6. ROXICODONE [Concomitant]
     Active Substance: OXYCODONE HYDROCHLORIDE
     Indication: PAIN
     Dosage: 5 MG (1 TAB), EVERY 4 HOURS AS NEEDED
     Route: 048
     Dates: start: 20181102

REACTIONS (5)
  - Dyspnoea at rest [Recovered/Resolved]
  - Vomiting [Unknown]
  - Pericardial effusion [Recovered/Resolved]
  - Nausea [Recovered/Resolved]
  - Cardiac tamponade [Recovered/Resolved]

NARRATIVE: CASE EVENT DATE: 20181102
